FAERS Safety Report 4520073-5 (Version None)
Quarter: 2004Q4

REPORT INFORMATION
  Report Type: 
  Country: None (occurrence: None)
  Receive Date: 20041207
  Receipt Date: 20041117
  Transmission Date: 20050328
  Serious: Yes (Hospitalization)
  Sender: FDA-Public Use
  Company Number: PHBS2004JP15497

PATIENT
  Age: 67 Year
  Sex: Male

DRUGS (2)
  1. CARBAMAZEPINE [Suspect]
     Indication: TRIGEMINAL NEURALGIA
     Route: 048
  2. CARBAMAZEPINE [Suspect]
     Dosage: 800 MG/DAY
     Route: 048

REACTIONS (1)
  - SINUS ARREST [None]
